FAERS Safety Report 5262955-5 (Version None)
Quarter: 2007Q1

REPORT INFORMATION
  Report Type: 
  Country: None (occurrence: None)
  Receive Date: 20070312
  Receipt Date: 20070226
  Transmission Date: 20070707
  Serious: Yes (Other)
  Sender: FDA-Public Use
  Company Number: US-ELI_LILLY_AND_COMPANY-US200701002197

PATIENT
  Sex: Female

DRUGS (2)
  1. FORTEO [Suspect]
     Dosage: UNK, UNK
     Dates: start: 20060913, end: 20070105
  2. B3D-US-GHCQ FORTEO OBSERVATIONAL CLINICA [Suspect]

REACTIONS (1)
  - HYPERCALCAEMIA [None]
